FAERS Safety Report 23077776 (Version 1)
Quarter: 2023Q4

REPORT INFORMATION
  Report Type: Spontaneous
  Country: US (occurrence: US)
  Receive Date: 20231018
  Receipt Date: 20231018
  Transmission Date: 20240110
  Serious: Yes (Other)
  Sender: FDA-Public Use
  Company Number: US-SANDOZ-SDZ2023US042125

PATIENT
  Age: 21 Year
  Sex: Female

DRUGS (4)
  1. CYCLOPHOSPHAMIDE [Suspect]
     Active Substance: CYCLOPHOSPHAMIDE
     Indication: Pericardial effusion
     Route: 065
  2. CYCLOPHOSPHAMIDE [Suspect]
     Active Substance: CYCLOPHOSPHAMIDE
     Indication: Seizure
  3. RITUXIMAB [Suspect]
     Active Substance: RITUXIMAB
     Indication: Pericardial effusion
     Route: 065
  4. RITUXIMAB [Suspect]
     Active Substance: RITUXIMAB
     Indication: Seizure

REACTIONS (3)
  - Respiratory failure [Recovering/Resolving]
  - Haemolytic anaemia [Recovered/Resolved]
  - Product use in unapproved indication [Unknown]
